FAERS Safety Report 23775217 (Version 3)
Quarter: 2024Q2

REPORT INFORMATION
  Report Type: Spontaneous
  Country: US (occurrence: US)
  Receive Date: 20240423
  Receipt Date: 20240529
  Transmission Date: 20240716
  Serious: Yes (Hospitalization, Other)
  Sender: FDA-Public Use
  Company Number: US-BRISTOL-MYERS SQUIBB COMPANY-2024-061800

PATIENT
  Age: 48 Year
  Sex: Male

DRUGS (2)
  1. SPRYCEL [Suspect]
     Active Substance: DASATINIB
     Indication: Leukaemia
  2. SPRYCEL [Suspect]
     Active Substance: DASATINIB

REACTIONS (6)
  - Cerebrovascular accident [Unknown]
  - Seizure [Unknown]
  - Paralysis [Unknown]
  - Hypertension [Unknown]
  - Blood cholesterol abnormal [Unknown]
  - Infection [Unknown]

NARRATIVE: CASE EVENT DATE: 20240128
